FAERS Safety Report 9935700 (Version 1)
Quarter: 2014Q1

REPORT INFORMATION
  Report Type: Spontaneous
  Country: US (occurrence: US)
  Receive Date: 20140228
  Receipt Date: 20140228
  Transmission Date: 20141002
  Serious: No
  Sender: FDA-Public Use
  Company Number: US-AMGEN-USASP2013082856

PATIENT
  Age: 71 Year
  Sex: Female
  Weight: 55.78 kg

DRUGS (6)
  1. ENBREL [Suspect]
     Indication: RHEUMATOID ARTHRITIS
     Dosage: 50 MG, QWK
     Route: 058
     Dates: start: 2013, end: 20131114
  2. BENICAR [Concomitant]
     Dosage: UNK
     Route: 065
  3. RESTASIS [Concomitant]
     Dosage: UNK
     Route: 065
  4. LEFLUNOMIDE [Concomitant]
     Dosage: UNK
     Route: 065
  5. AZITHROMYCIN [Concomitant]
     Dosage: UNK
     Route: 065
  6. PREDNISONE [Concomitant]
     Dosage: UNK
     Route: 065

REACTIONS (1)
  - Urticaria [Recovering/Resolving]
